FAERS Safety Report 17980014 (Version 1)
Quarter: 2020Q3

REPORT INFORMATION
  Report Type: Spontaneous
  Country: FR (occurrence: FR)
  Receive Date: 20200703
  Receipt Date: 20200703
  Transmission Date: 20201103
  Serious: Yes (Other)
  Sender: FDA-Public Use
  Company Number: FR-MYLANLABS-2020M1059842

PATIENT
  Age: 91 Year
  Sex: Female
  Weight: 50 kg

DRUGS (4)
  1. PANTOPRAZOLE MYLAN 40 MG, COMPRIM? GASTRO?R?SISTANT [Suspect]
     Active Substance: PANTOPRAZOLE SODIUM
     Indication: GASTROOESOPHAGEAL REFLUX DISEASE
     Dosage: 1 DOSAGE FORM, QD
     Route: 048
     Dates: start: 20200207
  2. HALDOL [Suspect]
     Active Substance: HALOPERIDOL
     Indication: ANXIETY
     Dosage: 5 MG MATIN MIDI ET SOIR, PLUS 5 MG SI AGITATION
     Route: 048
     Dates: start: 20200219
  3. MIRTAZAPINE BLUEFISH [Suspect]
     Active Substance: MIRTAZAPINE
     Indication: DEPRESSION
     Dosage: 1 DOSAGE FORM, QD
     Route: 048
     Dates: start: 20200220
  4. LOPERAMIDE LYOC [Suspect]
     Active Substance: LOPERAMIDE HYDROCHLORIDE
     Indication: DIARRHOEA
     Dosage: 3 DOSAGE FORM, QD (1 LYOC MATIN, MIDI ET SOIR)
     Route: 048
     Dates: start: 20200207

REACTIONS (3)
  - Dermatitis bullous [Not Recovered/Not Resolved]
  - Orthostatic hypotension [Not Recovered/Not Resolved]
  - Eosinophil count increased [Recovering/Resolving]

NARRATIVE: CASE EVENT DATE: 202005
